FAERS Safety Report 21060324 (Version 4)
Quarter: 2022Q4

REPORT INFORMATION
  Report Type: Spontaneous
  Country: US (occurrence: US)
  Receive Date: 20220708
  Receipt Date: 20221025
  Transmission Date: 20230113
  Serious: No
  Sender: FDA-Public Use
  Company Number: US-SA-SAC20220704001012

PATIENT
  Age: 46 Year
  Sex: Female

DRUGS (1)
  1. DUPIXENT [Suspect]
     Active Substance: DUPILUMAB
     Dosage: 300MG, OTHER
     Route: 058
     Dates: start: 202204

REACTIONS (8)
  - Injection site pain [Unknown]
  - Coronavirus infection [Unknown]
  - Dermatitis [Unknown]
  - Rash papular [Unknown]
  - Skin irritation [Unknown]
  - Drug ineffective [Unknown]
  - Viral infection [Unknown]
  - Blepharitis [Unknown]

NARRATIVE: CASE EVENT DATE: 20220610
